FAERS Safety Report 8770227 (Version 1)
Quarter: 2012Q4

REPORT INFORMATION
  Report Type: Report from Study
  Country: CA (occurrence: CA)
  Receive Date: 20120904
  Receipt Date: 20120904
  Transmission Date: 20130627
  Serious: Yes (Death)
  Sender: FDA-Public Use
  Company Number: CA-ROCHE-1111085

PATIENT
  Sex: Female
  Weight: 132.11 kg

DRUGS (12)
  1. ROACTEMRA [Suspect]
     Indication: RHEUMATOID ARTHRITIS
     Route: 042
     Dates: start: 20101118, end: 20120724
  2. EPIVAL [Concomitant]
  3. LOSEC (CANADA) [Concomitant]
  4. CIPRALEX [Concomitant]
  5. CLONAZEPAM [Concomitant]
  6. METHOTREXATE [Concomitant]
  7. NAPROXEN [Concomitant]
  8. FLEXERIL [Concomitant]
  9. ABILIFY [Concomitant]
  10. LIPITOR [Concomitant]
  11. IRON [Concomitant]
  12. LAMICTAL [Concomitant]

REACTIONS (1)
  - Death [Fatal]
